FAERS Safety Report 6719015-3 (Version None)
Quarter: 2010Q2

REPORT INFORMATION
  Report Type: 
  Country: None (occurrence: None)
  Receive Date: 20100507
  Receipt Date: 20100430
  Transmission Date: 20101027
  Serious: Yes (Other)
  Sender: FDA-Public Use
  Company Number: 20108361

PATIENT
  Sex: Male

DRUGS (3)
  1. LIORESAL [Suspect]
     Indication: MUSCLE SPASTICITY
     Dosage: INTRATHECAL
     Route: 037
  2. MORPHINE SULFATE [Concomitant]
  3. MYRALAX [Concomitant]

REACTIONS (14)
  - AGGRESSION [None]
  - ASTHENIA [None]
  - CHEST PAIN [None]
  - CONSTIPATION [None]
  - DRUG INEFFECTIVE [None]
  - FEELING COLD [None]
  - GASTRIC DISORDER [None]
  - HYPOAESTHESIA [None]
  - INCREASED UPPER AIRWAY SECRETION [None]
  - INSOMNIA [None]
  - MUSCLE SPASMS [None]
  - PAIN [None]
  - RESPIRATORY DISORDER [None]
  - SUICIDAL IDEATION [None]
